FAERS Safety Report 7953505-0 (Version None)
Quarter: 2011Q4

REPORT INFORMATION
  Report Type: 
  Country: None (occurrence: None)
  Receive Date: 20111202
  Receipt Date: 20111125
  Transmission Date: 20120403
  Serious: Yes (Other)
  Sender: FDA-Public Use
  Company Number: JP-PFIZER INC-2011283544

PATIENT
  Age: 73 Year
  Sex: Male

DRUGS (5)
  1. CINACALCET HYDROCHLORIDE [Concomitant]
     Dosage: 0.5 DF, UNK
  2. LOCHOLEST [Concomitant]
  3. CALBLOCK [Concomitant]
  4. CINACALCET HYDROCHLORIDE [Concomitant]
     Dosage: 1 DF, UNK
  5. VFEND [Suspect]
     Dosage: UNK
     Route: 048

REACTIONS (3)
  - LOSS OF CONSCIOUSNESS [None]
  - BLOOD PRESSURE DECREASED [None]
  - SOMNOLENCE [None]
